FAERS Safety Report 23616818 (Version 1)
Quarter: 2024Q1

REPORT INFORMATION
  Report Type: Spontaneous
  Country: IR (occurrence: IR)
  Receive Date: 20240311
  Receipt Date: 20240311
  Transmission Date: 20240409
  Serious: Yes (Hospitalization)
  Sender: FDA-Public Use
  Company Number: None

PATIENT
  Age: 77 Year
  Sex: Male

DRUGS (1)
  1. CAPECITABINE [Suspect]
     Active Substance: CAPECITABINE
     Indication: Rectal adenocarcinoma
     Dosage: BID
     Route: 048

REACTIONS (8)
  - Large intestinal stenosis [Recovered/Resolved]
  - Blood urea nitrogen/creatinine ratio increased [Recovered/Resolved]
  - Metabolic acidosis [Recovered/Resolved]
  - Rectal perforation [Recovered/Resolved]
  - Hypokalaemia [Recovered/Resolved]
  - Rectal obstruction [Recovered/Resolved]
  - Nausea [Recovered/Resolved]
  - Mucosal disorder [Recovered/Resolved]
